FAERS Safety Report 15048955 (Version 12)
Quarter: 2019Q2

REPORT INFORMATION
  Report Type: Report from Study
  Country: DE (occurrence: DE)
  Receive Date: 20180622
  Receipt Date: 20190627
  Transmission Date: 20190711
  Serious: Yes (Life-Threatening, Hospitalization, Other)
  Sender: FDA-Public Use
  Company Number: DE-ROCHE-2140435

PATIENT
  Age: 79 Year
  Sex: Female
  Weight: 65 kg

DRUGS (21)
  1. ENOXAPARIN [Suspect]
     Active Substance: ENOXAPARIN
     Route: 058
     Dates: start: 20180608, end: 20180611
  2. TAFINLAR [Suspect]
     Active Substance: DABRAFENIB MESYLATE
     Indication: MALIGNANT MELANOMA
     Route: 048
     Dates: start: 20180616, end: 20190311
  3. MEKINIST [Suspect]
     Active Substance: TRAMETINIB DIMETHYL SULFOXIDE
     Indication: MALIGNANT MELANOMA
     Route: 048
     Dates: start: 20180616, end: 20190311
  4. CANDESARTAN. [Concomitant]
     Active Substance: CANDESARTAN
     Indication: HYPERTENSION
     Route: 048
  5. PREDNISOLONE. [Concomitant]
     Active Substance: PREDNISOLONE
     Indication: STEVENS-JOHNSON SYNDROME
     Route: 048
     Dates: start: 20180326, end: 201803
  6. CEFTRIAXONE. [Suspect]
     Active Substance: CEFTRIAXONE
     Indication: INFECTION
     Route: 065
     Dates: start: 20180321, end: 20180325
  7. COBIMETINIB. [Suspect]
     Active Substance: COBIMETINIB
     Indication: MALIGNANT MELANOMA
     Route: 048
     Dates: start: 20180312, end: 20180320
  8. VEMURAFENIB. [Suspect]
     Active Substance: VEMURAFENIB
     Route: 048
     Dates: start: 20180403, end: 20180615
  9. ENOXAPARIN [Suspect]
     Active Substance: ENOXAPARIN
     Route: 058
  10. TORASEMID [Concomitant]
     Active Substance: TORSEMIDE
     Indication: HYPERTENSION
     Route: 048
     Dates: start: 201803
  11. VEMURAFENIB. [Suspect]
     Active Substance: VEMURAFENIB
     Indication: MALIGNANT MELANOMA
     Route: 048
     Dates: start: 20180312, end: 20180320
  12. ENOXAPARIN [Suspect]
     Active Substance: ENOXAPARIN
     Indication: ATRIAL FIBRILLATION
     Route: 058
     Dates: start: 20180403, end: 20180417
  13. PREDNISOLONE. [Concomitant]
     Active Substance: PREDNISOLONE
     Indication: DECREASED APPETITE
     Route: 048
     Dates: start: 201806
  14. COBIMETINIB. [Suspect]
     Active Substance: COBIMETINIB
     Route: 048
     Dates: start: 20180403, end: 20180615
  15. ENOXAPARIN [Suspect]
     Active Substance: ENOXAPARIN
     Indication: PULMONARY EMBOLISM
     Route: 058
     Dates: start: 20180403, end: 20180417
  16. ASPIRIN. [Concomitant]
     Active Substance: ASPIRIN
     Route: 048
  17. TORASEMID [Concomitant]
     Active Substance: TORSEMIDE
     Indication: ATRIAL FIBRILLATION
  18. VEMURAFENIB. [Suspect]
     Active Substance: VEMURAFENIB
     Route: 048
     Dates: start: 20180312, end: 20180615
  19. ENOXAPARIN [Suspect]
     Active Substance: ENOXAPARIN
     Route: 058
  20. COBIMETINIB. [Suspect]
     Active Substance: COBIMETINIB
     Route: 048
     Dates: start: 20180312, end: 20180615
  21. METRONIDAZOL [METRONIDAZOLE] [Concomitant]
     Active Substance: METRONIDAZOLE
     Route: 048
     Dates: start: 20180412, end: 20180418

REACTIONS (21)
  - Upper gastrointestinal haemorrhage [Unknown]
  - Gastric ulcer [Recovered/Resolved]
  - Pulmonary embolism [Unknown]
  - Infection [Recovering/Resolving]
  - Decreased appetite [Not Recovered/Not Resolved]
  - Nausea [Not Recovered/Not Resolved]
  - Hypokalaemia [Recovered/Resolved]
  - Melaena [Recovered/Resolved]
  - Atrial fibrillation [Recovered/Resolved]
  - Vomiting [Not Recovered/Not Resolved]
  - Syncope [Recovered/Resolved]
  - Helicobacter infection [Recovered/Resolved]
  - Fibrin D dimer increased [Recovered/Resolved]
  - Dysphagia [Unknown]
  - Spinal fracture [Not Recovered/Not Resolved]
  - Erythema multiforme [Recovered/Resolved]
  - Deep vein thrombosis [Unknown]
  - Anaemia [Recovering/Resolving]
  - Stevens-Johnson syndrome [Recovered/Resolved]
  - Dyspnoea [Recovered/Resolved]
  - Anaemia [Recovering/Resolving]

NARRATIVE: CASE EVENT DATE: 20180320
